FAERS Safety Report 11323991 (Version 2)
Quarter: 2015Q4

REPORT INFORMATION
  Report Type: Spontaneous
  Country: BR (occurrence: BR)
  Receive Date: 20150730
  Receipt Date: 20151008
  Transmission Date: 20160304
  Serious: Yes (Hospitalization, Other)
  Sender: FDA-Public Use
  Company Number: BR-PFIZER INC-2015251363

PATIENT
  Age: 62 Year
  Sex: Female
  Weight: 77 kg

DRUGS (9)
  1. SERTRALINE HCL [Concomitant]
     Active Substance: SERTRALINE HYDROCHLORIDE
     Indication: DEPRESSION
     Dosage: 150 MG, 1 TABLET OF 50MG AND 1 TABLET OF 100MG
     Dates: start: 2002
  2. CELEBRA [Suspect]
     Active Substance: CELECOXIB
     Indication: PAIN
     Route: 048
  3. RENITEC [Concomitant]
     Active Substance: ENALAPRIL MALEATE
     Indication: HYPERTENSION
     Dosage: 1 TABLET IN THE MORNING AND 1 TABLET AT NIGHT
     Dates: start: 2002
  4. CELEBRA [Suspect]
     Active Substance: CELECOXIB
     Indication: INFLAMMATION
  5. VIVACOR [Concomitant]
     Active Substance: BISOPROLOL FUMARATE
     Indication: BLOOD CHOLESTEROL ABNORMAL
     Dosage: 10 MG, 1 TABLET AT NIGHT
     Dates: start: 2002
  6. GALVUS [Concomitant]
     Active Substance: VILDAGLIPTIN
     Indication: DIABETES MELLITUS
     Dosage: 1 TABLET IN THE MORNING AND 1 TABLET AT NIGHT
     Dates: start: 2010
  7. PIOGLIT [Concomitant]
     Indication: DIABETES MELLITUS
     Dosage: 1 TABLET AFTER LUNCH
     Dates: start: 2013
  8. LORAX [Concomitant]
     Active Substance: LORAZEPAM
     Indication: DEPRESSION
     Dosage: 2 MG, HALF TABLET OF 2MG IN THE MORNING AND THE OTHER HALF AT NIGHT
     Dates: start: 2003
  9. ZOLOFT [Concomitant]
     Active Substance: SERTRALINE HYDROCHLORIDE
     Dosage: UNK
     Dates: start: 2002

REACTIONS (2)
  - Drug ineffective [Recovered/Resolved]
  - Monoplegia [Recovered/Resolved]

NARRATIVE: CASE EVENT DATE: 20140605
